FAERS Safety Report 8098361-8 (Version None)
Quarter: 2012Q1

REPORT INFORMATION
  Report Type: 
  Country: None (occurrence: None)
  Receive Date: 20120131
  Receipt Date: 20120124
  Transmission Date: 20120608
  Serious: Yes (Other)
  Sender: FDA-Public Use
  Company Number: JP-JNJFOC-20120104859

PATIENT
  Age: 79 Year
  Sex: Male

DRUGS (3)
  1. SEROQUEL [Concomitant]
     Indication: SCHIZOPHRENIA
     Route: 048
  2. ARICEPT [Concomitant]
     Indication: DEMENTIA
     Route: 048
  3. RISPERDAL [Suspect]
     Indication: SCHIZOPHRENIA
     Dosage: AS NEEDED BASIS
     Route: 048
     Dates: start: 20110217, end: 20110304

REACTIONS (1)
  - ALTERED STATE OF CONSCIOUSNESS [None]
